FAERS Safety Report 21441348 (Version 1)
Quarter: 2022Q4

REPORT INFORMATION
  Report Type: Spontaneous
  Country: US (occurrence: US)
  Receive Date: 20221011
  Receipt Date: 20221011
  Transmission Date: 20230112
  Serious: No
  Sender: FDA-Public Use
  Company Number: US-BRISTOL-MYERS SQUIBB COMPANY-2022-113641

PATIENT
  Age: 63 Year
  Sex: Male

DRUGS (5)
  1. NIVOLUMAB [Suspect]
     Active Substance: NIVOLUMAB
     Indication: Cholangiocarcinoma
     Route: 065
     Dates: start: 20200830
  2. IPILIMUMAB [Suspect]
     Active Substance: IPILIMUMAB
     Indication: Cholangiocarcinoma
     Route: 065
     Dates: start: 20200830
  3. IPILIMUMAB [Suspect]
     Active Substance: IPILIMUMAB
     Route: 065
  4. IPILIMUMAB [Suspect]
     Active Substance: IPILIMUMAB
     Route: 065
  5. IPILIMUMAB [Suspect]
     Active Substance: IPILIMUMAB
     Route: 065

REACTIONS (2)
  - Off label use [Unknown]
  - Hepatic enzyme increased [Unknown]
